FAERS Safety Report 15250898 (Version 1)
Quarter: 2018Q3

REPORT INFORMATION
  Report Type: Spontaneous
  Country: US (occurrence: US)
  Receive Date: 20180716
  Receipt Date: 20180716
  Transmission Date: 20181010
  Serious: Yes (Hospitalization)
  Sender: FDA-Public Use
  Company Number: None

PATIENT
  Age: 11 Year
  Sex: Female
  Weight: 35 kg

DRUGS (1)
  1. CLONAZEPAM. [Suspect]
     Active Substance: CLONAZEPAM
     Indication: SEIZURE
     Dosage: ?          QUANTITY:1 TABLET(S);OTHER ROUTE:G?TUBE?
     Dates: start: 20180630, end: 20180708

REACTIONS (7)
  - Seizure [None]
  - Eye swelling [None]
  - Nasal oedema [None]
  - Agitation [None]
  - Abnormal behaviour [None]
  - Pallor [None]
  - Dyskinesia [None]

NARRATIVE: CASE EVENT DATE: 20180708
